FAERS Safety Report 5606293-7 (Version None)
Quarter: 2008Q1

REPORT INFORMATION
  Report Type: 
  Country: None (occurrence: None)
  Receive Date: 20080129
  Receipt Date: 20070509
  Transmission Date: 20080703
  Serious: No
  Sender: FDA-Public Use
  Company Number: A0650513A

PATIENT
  Age: 55 Year
  Sex: Male

DRUGS (3)
  1. WELLBUTRIN [Suspect]
     Indication: DEPRESSION
     Dosage: 300MG PER DAY
     Route: 048
     Dates: start: 20070419
  2. CAMPRAL [Suspect]
     Indication: ALCOHOLISM
     Dosage: 666MG THREE TIMES PER DAY
     Route: 048
     Dates: start: 20070419
  3. SYNTHROID [Concomitant]
     Indication: HYPOTHYROIDISM

REACTIONS (1)
  - BLOOD PRESSURE INCREASED [None]
